FAERS Safety Report 4726194-6 (Version None)
Quarter: 2005Q3

REPORT INFORMATION
  Report Type: 
  Country: None (occurrence: None)
  Receive Date: 20050725
  Receipt Date: 20050719
  Transmission Date: 20060218
  Serious: Yes (Other)
  Sender: FDA-Public Use
  Company Number: 200512195GDS

PATIENT
  Age: 77 Year
  Sex: Male

DRUGS (1)
  1. AVELOX [Suspect]
     Indication: PYREXIA
     Dosage: 400 MG, QD, ORAL
     Route: 048
     Dates: start: 20050717

REACTIONS (2)
  - MYOCLONUS [None]
  - RENAL FAILURE ACUTE [None]
